FAERS Safety Report 15863397 (Version 1)
Quarter: 2019Q1

REPORT INFORMATION
  Report Type: Spontaneous
  Country: FR (occurrence: FR)
  Receive Date: 20190124
  Receipt Date: 20190124
  Transmission Date: 20190417
  Serious: Yes (Other)
  Sender: FDA-Public Use
  Company Number: FR-MYLANLABS-2019M1006115

PATIENT
  Age: 78 Year
  Sex: Male

DRUGS (6)
  1. FUROSEMIDE. [Suspect]
     Active Substance: FUROSEMIDE
     Indication: HYPERTENSION
     Dosage: 40 MILLIGRAM, QD
     Route: 048
     Dates: end: 20180505
  2. MOPRAL                             /00661201/ [Suspect]
     Active Substance: OMEPRAZOLE SODIUM
     Indication: PRODUCT USED FOR UNKNOWN INDICATION
     Dosage: UNK
     Route: 048
     Dates: end: 20180505
  3. HYPERIUM [Suspect]
     Active Substance: RILMENIDINE PHOSPHATE
     Indication: HYPERTENSION
     Dosage: UNK
     Route: 048
     Dates: end: 20180505
  4. TEMERIT [Suspect]
     Active Substance: NEBIVOLOL
     Indication: HYPERTENSION
     Dosage: UNK
     Route: 048
     Dates: end: 20180505
  5. FOZITEC                            /00915301/ [Suspect]
     Active Substance: FOSINOPRIL
     Indication: HYPERTENSION
     Dosage: UNK
     Route: 048
     Dates: end: 20180505
  6. ASASANTINE [Suspect]
     Active Substance: ASPIRIN\DIPYRIDAMOLE
     Indication: PROPHYLAXIS
     Dosage: 2 DOSAGE FORM, QD
     Route: 048
     Dates: end: 20180505

REACTIONS (2)
  - Hypokalaemia [Recovered/Resolved]
  - Acute kidney injury [Recovered/Resolved]

NARRATIVE: CASE EVENT DATE: 20180505
